FAERS Safety Report 21822172 (Version 2)
Quarter: 2023Q1

REPORT INFORMATION
  Report Type: Other
  Country: ES (occurrence: ES)
  Receive Date: 20230105
  Receipt Date: 20230215
  Transmission Date: 20230417
  Serious: Yes (Hospitalization)
  Sender: FDA-Public Use
  Company Number: ES-CELLTRION HEALTHCARE HUNGARY KFT-2022ES014343

PATIENT
  Age: 60 Year
  Sex: Male
  Weight: 108 kg

DRUGS (26)
  1. RITUXIMAB [Suspect]
     Active Substance: RITUXIMAB
     Indication: Follicular lymphoma
     Dosage: 375 MG/M2 (790 MG) (ON DAYS 1, 8, 15 AND 22 O CYCLE 1 AND THEN ON DAY 1 OF CYCLES 2 TO 5);
     Route: 042
     Dates: end: 20220530
  2. RITUXIMAB [Suspect]
     Active Substance: RITUXIMAB
     Dosage: 375 MG/M2 (790 MG) (ON DAYS 1, 8, 15 AND 22 O CYCLE 1 AND THEN ON DAY 1 OF CYCLES 2 TO 5)
     Route: 042
     Dates: start: 20220606
  3. RITUXIMAB [Suspect]
     Active Substance: RITUXIMAB
     Dosage: 375 MG/M2 (790 MG) (ON DAYS 1, 8, 15 AND 22 O CYCLE 1 AND THEN ON DAY 1 OF CYCLES 2 TO 5);
     Route: 042
     Dates: start: 20220411
  4. RITUXIMAB [Suspect]
     Active Substance: RITUXIMAB
     Dosage: 375 MG/M2 (790 MG) (ON DAYS 1, 8, 15 AND 22 O CYCLE 1 AND THEN ON DAY 1 OF CYCLES 2 TO 5);
     Route: 042
     Dates: end: 20220510
  5. TAFASITAMAB-CXIX [Suspect]
     Active Substance: TAFASITAMAB-CXIX
     Indication: Follicular lymphoma
     Dosage: 12 MG/KG (1300MG- DAYS 1, 8, 15, 22 CYCLES OF 1 TO 3 THEN DAYS 1 AND 15 OF CYCLESS 4 TO 12)
     Route: 065
     Dates: end: 20220523
  6. TAFASITAMAB-CXIX [Suspect]
     Active Substance: TAFASITAMAB-CXIX
     Dosage: 12 MG/KG (1300MG- DAYS 1, 8, 15, 22 CYCLES OF 1 TO 3 THEN DAYS 1 AND 15 OF CYCLESS 4 TO 12)
     Route: 065
     Dates: start: 20220606
  7. TAFASITAMAB-CXIX [Suspect]
     Active Substance: TAFASITAMAB-CXIX
     Dosage: 12 MG/KG (1300MG- DAYS 1, 8, 15, 22 CYCLES OF 1 TO 3 THEN DAYS 1 AND 15 OF CYCLESS 4 TO 12)
     Route: 065
     Dates: end: 20220530
  8. TAFASITAMAB-CXIX [Suspect]
     Active Substance: TAFASITAMAB-CXIX
     Dosage: 12 MG/KG (1300MG- DAYS 1, 8, 15, 22 CYCLES OF 1 TO 3 THEN DAYS 1 AND 15 OF CYCLESS 4 TO 12)
     Route: 065
     Dates: start: 20220411
  9. LENALIDOMIDE [Suspect]
     Active Substance: LENALIDOMIDE
     Indication: Follicular lymphoma
     Route: 065
     Dates: start: 20220606
  10. LENALIDOMIDE [Suspect]
     Active Substance: LENALIDOMIDE
     Route: 065
     Dates: end: 20220530
  11. LENALIDOMIDE [Suspect]
     Active Substance: LENALIDOMIDE
     Route: 065
     Dates: start: 20220411
  12. LENALIDOMIDE [Suspect]
     Active Substance: LENALIDOMIDE
     Route: 065
     Dates: start: 20220608
  13. LENALIDOMIDE [Suspect]
     Active Substance: LENALIDOMIDE
     Route: 065
     Dates: end: 20220529
  14. LOSARTAN [Concomitant]
     Active Substance: LOSARTAN
     Indication: Hypotension
     Dates: start: 20200907
  15. METFORMIN [Concomitant]
     Active Substance: METFORMIN HYDROCHLORIDE
     Dates: start: 20210609
  16. FENOFIBRATE [Concomitant]
     Active Substance: FENOFIBRATE
     Dates: start: 20200728
  17. INSULIN GLARGINE [Concomitant]
     Active Substance: INSULIN GLARGINE
     Dates: start: 20190913
  18. OMEPRAZOLE [Concomitant]
     Active Substance: OMEPRAZOLE
     Dates: start: 20160930
  19. IPRATROPIUM BROMIDE [Concomitant]
     Active Substance: IPRATROPIUM BROMIDE
     Dates: start: 20170817
  20. INSULIN NOS [Concomitant]
     Active Substance: INSULIN NOS
     Dates: start: 20190905
  21. ALBUTEROL [Concomitant]
     Active Substance: ALBUTEROL
     Dosage: UNK
     Dates: start: 20170827
  22. BISOPROLOL [Concomitant]
     Active Substance: BISOPROLOL
     Indication: Cardiac disorder
     Dates: start: 20160216
  23. ACENOCOUMAROL [Concomitant]
     Active Substance: ACENOCOUMAROL
     Dates: start: 20170714
  24. UMECLIDINIUM BROMIDE [Concomitant]
     Active Substance: UMECLIDINIUM BROMIDE
     Dates: start: 20170923
  25. HYDROCHLOROTHIAZIDE [Concomitant]
     Active Substance: HYDROCHLOROTHIAZIDE
     Indication: Hypotension
     Dates: start: 20201107
  26. ALLOPURINOL [Concomitant]
     Active Substance: ALLOPURINOL
     Dates: start: 20160908

REACTIONS (2)
  - Hypotension [Recovered/Resolved]
  - Asthenia [Recovered/Resolved]

NARRATIVE: CASE EVENT DATE: 20220530
